FAERS Safety Report 9154663 (Version 2)
Quarter: 2013Q2

REPORT INFORMATION
  Report Type: Spontaneous
  Country: US (occurrence: None)
  Receive Date: 20130207
  Receipt Date: 20130402
  Transmission Date: 20140414
  Serious: Yes (Other)
  Sender: FDA-Public Use
  Company Number: CRC-13-057

PATIENT
  Age: 66 Year
  Sex: Female

DRUGS (1)
  1. LETROZOLE [Suspect]
     Indication: BREAST CANCER
     Dosage: 1 TABLET DAILY; BY MOUTH
     Route: 048
     Dates: start: 20130119, end: 20130120

REACTIONS (8)
  - Hallucination [None]
  - Somnambulism [None]
  - Restlessness [None]
  - Thinking abnormal [None]
  - Logorrhoea [None]
  - Hot flush [None]
  - Cold sweat [None]
  - Dizziness [None]
